FAERS Safety Report 7921081-4 (Version None)
Quarter: 2011Q4

REPORT INFORMATION
  Report Type: 
  Country: None (occurrence: None)
  Receive Date: 20111117
  Receipt Date: 20111115
  Transmission Date: 20120403
  Serious: Yes (Hospitalization, Disabling)
  Sender: FDA-Public Use
  Company Number: US-MERCK-1109USA02801

PATIENT
  Age: 64 Year
  Sex: Female

DRUGS (3)
  1. FOSAMAX [Suspect]
     Indication: OSTEOPOROSIS
     Route: 048
     Dates: start: 19991201, end: 20100501
  2. ZYRTEC [Concomitant]
     Route: 065
  3. SINGULAIR [Concomitant]
     Route: 065

REACTIONS (2)
  - FEMUR FRACTURE [None]
  - DIABETES MELLITUS [None]
